FAERS Safety Report 4794283-6 (Version None)
Quarter: 2005Q4

REPORT INFORMATION
  Report Type: 
  Country: None (occurrence: None)
  Receive Date: 20051011
  Receipt Date: 20050929
  Transmission Date: 20060501
  Serious: Yes (Hospitalization)
  Sender: FDA-Public Use
  Company Number: FR-GLAXOSMITHKLINE-B0396527A

PATIENT
  Age: 65 Year
  Sex: Female
  Weight: 64 kg

DRUGS (15)
  1. ONDANSETRON [Suspect]
     Dosage: 8MG TWICE PER DAY
     Route: 065
     Dates: start: 20050426, end: 20050814
  2. HOLOXAN [Suspect]
     Dosage: 2.5GM2 UNKNOWN
     Route: 042
     Dates: start: 20050426, end: 20050814
  3. LARGACTIL [Suspect]
     Dosage: 25MG PER DAY
     Route: 042
     Dates: start: 20050426, end: 20050814
  4. SOLU-MEDROL [Suspect]
     Route: 042
     Dates: start: 20050426, end: 20050814
  5. UROMITEXAN [Suspect]
     Dosage: 6G PER DAY
     Route: 042
     Dates: start: 20050426, end: 20050814
  6. DOXORUBICIN HCL [Suspect]
     Dosage: 20MGM2 UNKNOWN
     Route: 042
     Dates: start: 20050426, end: 20050814
  7. LEVOTHYROX [Suspect]
     Indication: THYROIDECTOMY
  8. ZOCOR [Suspect]
  9. TRIATEC [Suspect]
  10. PRIMPERAN INJ [Suspect]
  11. NEULASTA [Suspect]
     Dosage: 6MG PER DAY
     Dates: start: 20050429, end: 20050722
  12. NEORECORMON [Suspect]
     Dates: start: 20050401
  13. IMOVANE [Suspect]
  14. TARDYFERON [Suspect]
  15. DAFALGAN [Suspect]

REACTIONS (20)
  - BONE MARROW FAILURE [None]
  - CONFUSIONAL STATE [None]
  - DEHYDRATION [None]
  - DEPRESSED LEVEL OF CONSCIOUSNESS [None]
  - DISORIENTATION [None]
  - ENCEPHALOPATHY [None]
  - GLYCOSURIA [None]
  - HYPERCHLORAEMIA [None]
  - HYPERNATRAEMIA [None]
  - HYPERPHOSPHATURIA [None]
  - HYPOKALAEMIA [None]
  - HYPOPHOSPHATAEMIA [None]
  - LEUKOCYTOSIS [None]
  - METABOLIC ACIDOSIS [None]
  - POLYDIPSIA [None]
  - POLYURIA [None]
  - RENAL TUBULAR DISORDER [None]
  - SOMNOLENCE [None]
  - TACHYCARDIA [None]
  - WEIGHT DECREASED [None]
